FAERS Safety Report 20055614 (Version 2)
Quarter: 2021Q4

REPORT INFORMATION
  Report Type: Spontaneous
  Country: US (occurrence: None)
  Receive Date: 20211110
  Receipt Date: 20211212
  Transmission Date: 20220303
  Serious: No
  Sender: FDA-Public Use
  Company Number: 2021A782065

PATIENT
  Sex: Female
  Weight: 104.3 kg

DRUGS (2)
  1. FASENRA [Suspect]
     Active Substance: BENRALIZUMAB
     Indication: Asthma
     Route: 058
  2. FASENRA [Suspect]
     Active Substance: BENRALIZUMAB
     Indication: Hypersensitivity
     Route: 058

REACTIONS (4)
  - Dyspnoea [Unknown]
  - Nasal congestion [Unknown]
  - Wheezing [Unknown]
  - Illness [Unknown]
